FAERS Safety Report 24965650 (Version 1)
Quarter: 2025Q1

REPORT INFORMATION
  Report Type: Spontaneous
  Country: US (occurrence: None)
  Receive Date: 20250211
  Receipt Date: 20250211
  Transmission Date: 20250409
  Serious: Yes (Life-Threatening, Hospitalization)
  Sender: FDA-CTU
  Company Number: None

PATIENT
  Age: 34 Year
  Sex: Female
  Weight: 63.5 kg

DRUGS (2)
  1. MIRENA [Suspect]
     Active Substance: LEVONORGESTREL
  2. Prenatal vitamin and iron supplement [Concomitant]

REACTIONS (5)
  - Complication associated with device [None]
  - Uterine scar [None]
  - Uterine dilation and curettage [None]
  - Postpartum haemorrhage [None]
  - Placenta accreta [None]

NARRATIVE: CASE EVENT DATE: 20240923
